FAERS Safety Report 10016771 (Version 3)
Quarter: 2014Q1

REPORT INFORMATION
  Report Type: Report from Study
  Country: BR (occurrence: BR)
  Receive Date: 20140318
  Receipt Date: 20140324
  Transmission Date: 20141002
  Serious: Yes (Death, Hospitalization, Other)
  Sender: FDA-Public Use
  Company Number: PHHY2014BR031635

PATIENT
  Age: 91 Year
  Sex: Female

DRUGS (6)
  1. EXELON PATCH [Suspect]
     Indication: DEMENTIA ALZHEIMER^S TYPE
     Dosage: 9.5 MG, PER 24 HOURS (10 CM2)
     Route: 062
     Dates: start: 201110
  2. FUROSEMIDE [Concomitant]
     Indication: DEPRESSION
     Dosage: 40 MG, UNK
     Dates: start: 2011
  3. ENALAPRIL [Concomitant]
     Dosage: 10 MG, UNK
     Dates: start: 201103
  4. DAFORIN [Concomitant]
     Indication: DEPRESSION
     Dosage: 20 MG, UNK
     Dates: start: 201103
  5. CYMBALTA [Concomitant]
     Dosage: 30 MG, UNK
     Dates: start: 201107
  6. GABAPENTIN [Concomitant]
     Dosage: 300 MG, UNK

REACTIONS (4)
  - Renal failure [Fatal]
  - Gastric ulcer haemorrhage [Fatal]
  - Pulmonary sepsis [Fatal]
  - Memory impairment [Not Recovered/Not Resolved]
